FAERS Safety Report 22079531 (Version 1)
Quarter: 2023Q1

REPORT INFORMATION
  Report Type: Spontaneous
  Country: US (occurrence: US)
  Receive Date: 20230309
  Receipt Date: 20230309
  Transmission Date: 20230418
  Serious: No
  Sender: FDA-Public Use
  Company Number: US-PFIZER INC-202300096742

PATIENT
  Age: 76 Year
  Sex: Female
  Weight: 68.04 kg

DRUGS (3)
  1. PAXLOVID [Suspect]
     Active Substance: NIRMATRELVIR\RITONAVIR
     Indication: COVID-19 treatment
     Dosage: UNK
     Dates: start: 20230303
  2. LOSARTAN [Concomitant]
     Active Substance: LOSARTAN
     Indication: Blood pressure measurement
     Dosage: 50 MG, 1X/DAY (MORNING)
  3. TAGAMET [Concomitant]
     Active Substance: CIMETIDINE
     Indication: Gastrooesophageal reflux disease

REACTIONS (3)
  - Diarrhoea [Not Recovered/Not Resolved]
  - Heart rate irregular [Unknown]
  - Tremor [Unknown]
